FAERS Safety Report 25345650 (Version 3)
Quarter: 2025Q2

REPORT INFORMATION
  Report Type: Spontaneous
  Country: US (occurrence: US)
  Receive Date: 20250522
  Receipt Date: 20250610
  Transmission Date: 20250717
  Serious: No
  Sender: Haleon PLC
  Company Number: US-HALEON-2243507

PATIENT

DRUGS (1)
  1. FLONASE SENSIMIST ALLERGY RELIEF [Suspect]
     Active Substance: FLUTICASONE FUROATE
     Indication: Product used for unknown indication

REACTIONS (2)
  - Headache [Unknown]
  - Product odour abnormal [Unknown]
